FAERS Safety Report 9661813 (Version 2)
Quarter: 2013Q4

REPORT INFORMATION
  Report Type: Spontaneous
  Country: US (occurrence: US)
  Receive Date: 20131031
  Receipt Date: 20131031
  Transmission Date: 20140711
  Serious: No
  Sender: FDA-Public Use
  Company Number: US-PURDUE-USA-2010-0046795

PATIENT
  Sex: Male

DRUGS (2)
  1. OXYCONTIN (NDA 22-272) [Suspect]
     Indication: PRODUCT USED FOR UNKNOWN INDICATION
     Dosage: 80 MG, TID
     Dates: start: 201008
  2. MINERAL OIL EMULSION [Concomitant]
     Indication: CONSTIPATION
     Dosage: UNK

REACTIONS (7)
  - Drug withdrawal syndrome [Unknown]
  - Inadequate analgesia [Unknown]
  - Intentional drug misuse [Unknown]
  - Constipation [Unknown]
  - Abdominal pain upper [Unknown]
  - Hyperhidrosis [Unknown]
  - Feeling abnormal [Unknown]
